FAERS Safety Report 11464231 (Version 1)
Quarter: 2015Q3

REPORT INFORMATION
  Report Type: Spontaneous
  Country: US (occurrence: US)
  Receive Date: 20150831
  Receipt Date: 20150831
  Transmission Date: 20151125
  Serious: No
  Sender: FDA-Public Use
  Company Number: US-ELI_LILLY_AND_COMPANY-US201106008640

PATIENT
  Sex: Female

DRUGS (1)
  1. CYMBALTA [Suspect]
     Active Substance: DULOXETINE HYDROCHLORIDE
     Indication: DEPRESSION
     Dosage: 60 MG, QD

REACTIONS (7)
  - Irritability [Unknown]
  - Depression [Unknown]
  - Paraesthesia [Unknown]
  - Dizziness [Unknown]
  - Drug effect decreased [Unknown]
  - Crying [Unknown]
  - Abnormal behaviour [Unknown]
